FAERS Safety Report 4991415-1 (Version None)
Quarter: 2006Q2

REPORT INFORMATION
  Report Type: 
  Country: None (occurrence: None)
  Receive Date: 20060502
  Receipt Date: 20060425
  Transmission Date: 20061013
  Serious: Yes (Life-Threatening)
  Sender: FDA-Public Use
  Company Number: 2006-141715-NL

PATIENT
  Age: 60 Year
  Sex: Female

DRUGS (3)
  1. VECURONIUM BROMIDE [Suspect]
     Indication: INDUCTION OF ANAESTHESIA
     Dosage: INTRAVENOUS NOS
     Route: 042
     Dates: start: 20050512, end: 20050512
  2. PROPOFOL [Suspect]
     Indication: INDUCTION OF ANAESTHESIA
     Dosage: INTRAVENOUS NOS
     Route: 042
     Dates: start: 20050512, end: 20050512
  3. SUFENTANIL CITRATE [Suspect]
     Dosage: INTRAVENOUS (NOS)
     Route: 042
     Dates: start: 20050512, end: 20050512

REACTIONS (1)
  - ANAPHYLACTIC SHOCK [None]
